FAERS Safety Report 8818647 (Version 2)
Quarter: 2012Q4

REPORT INFORMATION
  Report Type: 
  Country: GB (occurrence: GB)
  Receive Date: 20121001
  Receipt Date: 20121015
  Transmission Date: 20130627
  Serious: Yes (Life-Threatening, Hospitalization)
  Sender: FDA-Public Use
  Company Number: PHHY2012GB084766

PATIENT
  Age: 21 Year
  Sex: Female
  Weight: 54 kg

DRUGS (8)
  1. CODEINE PHOSPHATE [Suspect]
     Indication: DEPRESSION
     Dosage: 15 mg
     Route: 048
     Dates: start: 20120829, end: 20120829
  2. CODEINE PHOSPHATE [Suspect]
     Dosage: 60 mg
     Route: 048
     Dates: start: 20120829, end: 20120829
  3. SERTRALINE [Suspect]
     Indication: DEPRESSION
     Dosage: 100 mg
     Route: 048
     Dates: start: 20120829, end: 20120829
  4. DIAZEPAM [Suspect]
     Indication: DEPRESSION
     Dosage: 2 mg
     Route: 048
     Dates: start: 20120829, end: 20120829
  5. CO-CODAMOL [Suspect]
     Indication: DEPRESSION
     Dosage: 8mg/500mg
     Route: 048
     Dates: start: 20120829, end: 20120829
  6. CO-CODAMOL [Suspect]
     Dosage: 30mg/500mg
     Route: 048
     Dates: start: 20120829, end: 20120829
  7. IBUPROFEN [Suspect]
     Indication: DEPRESSION
     Dosage: 7 full blisters of 200 mg tablets
     Route: 048
     Dates: start: 20120829, end: 20120829
  8. AMITRIPTYLINE [Suspect]
     Indication: DEPRESSION
     Dosage: 10 mg
     Route: 048
     Dates: start: 20120829, end: 20120829

REACTIONS (11)
  - Aggression [Unknown]
  - Stubbornness [Unknown]
  - Coma scale abnormal [Unknown]
  - Abdominal pain upper [Unknown]
  - Somnolence [Unknown]
  - Amylase increased [Unknown]
  - Aspartate aminotransferase increased [Unknown]
  - Blood lactate dehydrogenase increased [Unknown]
  - Respiratory depression [Unknown]
  - Drug level increased [Unknown]
  - Intentional overdose [Unknown]
